FAERS Safety Report 17029754 (Version 3)
Quarter: 2020Q1

REPORT INFORMATION
  Report Type: Report from Study
  Country: US (occurrence: US)
  Receive Date: 20191114
  Receipt Date: 20200123
  Transmission Date: 20200409
  Serious: Yes (Hospitalization)
  Sender: FDA-Public Use
  Company Number: US-BEH-2019109281

PATIENT
  Age: 53 Year
  Sex: Female
  Weight: 56.69 kg

DRUGS (1)
  1. ZEMAIRA [Suspect]
     Active Substance: .ALPHA.1-PROTEINASE INHIBITOR HUMAN
     Indication: ALPHA-1 ANTI-TRYPSIN DEFICIENCY
     Route: 042

REACTIONS (6)
  - Cough [Recovered/Resolved]
  - Pneumonia [Unknown]
  - Pneumonia [Recovering/Resolving]
  - Unintentional medical device removal [Unknown]
  - No adverse event [Unknown]
  - Endobronchial valve implantation [Recovering/Resolving]

NARRATIVE: CASE EVENT DATE: 20191028
